FAERS Safety Report 19817133 (Version 3)
Quarter: 2021Q4

REPORT INFORMATION
  Report Type: Report from Study
  Country: ES (occurrence: ES)
  Receive Date: 20210910
  Receipt Date: 20211118
  Transmission Date: 20220303
  Serious: Yes (Hospitalization)
  Sender: FDA-Public Use
  Company Number: ES-ALXN-A202109937

PATIENT
  Age: 72 Year
  Sex: Female
  Weight: 56 kg

DRUGS (7)
  1. RAVULIZUMAB [Suspect]
     Active Substance: RAVULIZUMAB
     Indication: Amyotrophic lateral sclerosis
     Dosage: UNK
     Route: 042
     Dates: start: 20201117
  2. RAVULIZUMAB [Suspect]
     Active Substance: RAVULIZUMAB
     Dosage: UNK
     Route: 042
     Dates: start: 20210713
  3. RILUZOLE [Concomitant]
     Active Substance: RILUZOLE
     Indication: Amyotrophic lateral sclerosis
     Dosage: 50 MG, BID
     Route: 048
     Dates: start: 201912
  4. AUXINA E [Concomitant]
     Indication: Amyotrophic lateral sclerosis
     Dosage: 400 MG, QD
     Route: 048
     Dates: start: 202004
  5. FLUMIL                             /00082801/ [Concomitant]
     Indication: Amyotrophic lateral sclerosis
     Dosage: 300 MG, QD
     Route: 048
     Dates: start: 202004
  6. COENZIMA Q10 [Concomitant]
     Indication: Amyotrophic lateral sclerosis
     Dosage: 50 MG, QD
     Route: 048
     Dates: start: 202004
  7. L-CARNITINE                        /00878601/ [Concomitant]
     Indication: Amyotrophic lateral sclerosis
     Dosage: UNK MG, QD
     Route: 048
     Dates: start: 202004

REACTIONS (1)
  - Pneumonia [Recovered/Resolved]

NARRATIVE: CASE EVENT DATE: 20210902
